FAERS Safety Report 25724873 (Version 1)
Quarter: 2025Q3

REPORT INFORMATION
  Report Type: Spontaneous
  Country: US (occurrence: US)
  Receive Date: 20250826
  Receipt Date: 20250826
  Transmission Date: 20251021
  Serious: No
  Sender: TARO
  Company Number: US-TARO PHARMACEUTICALS USA INC.-2025TAR01410

PATIENT

DRUGS (1)
  1. FLUOCINONIDE [Suspect]
     Active Substance: FLUOCINONIDE
     Indication: Product used for unknown indication
     Route: 061
     Dates: start: 20250328

REACTIONS (1)
  - Product quality issue [Unknown]

NARRATIVE: CASE EVENT DATE: 20250328
